FAERS Safety Report 6218021-5 (Version None)
Quarter: 2009Q2

REPORT INFORMATION
  Report Type: 
  Country: None (occurrence: None)
  Receive Date: 20090604
  Receipt Date: 20090604
  Transmission Date: 20091009
  Serious: Yes (Life-Threatening, Hospitalization)
  Sender: FDA-Public Use
  Company Number: None

PATIENT
  Age: 76 Year
  Sex: Male
  Weight: 89.1318 kg

DRUGS (1)
  1. METOCLOPRAMIDE [Suspect]
     Indication: GASTROOESOPHAGEAL REFLUX DISEASE
     Dosage: 5 MG 3 DAILY PO
     Route: 048
     Dates: start: 20080901, end: 20090506

REACTIONS (6)
  - ANOREXIA [None]
  - ANXIETY [None]
  - DEPRESSION [None]
  - DEREALISATION [None]
  - PSYCHIATRIC SYMPTOM [None]
  - TREMOR [None]
